FAERS Safety Report 8222601-5 (Version None)
Quarter: 2012Q1

REPORT INFORMATION
  Report Type: 
  Country: None (occurrence: None)
  Receive Date: 20120312
  Receipt Date: 20111230
  Transmission Date: 20120608
  Serious: Yes (Hospitalization)
  Sender: FDA-Public Use
  Company Number: DSA_55421_2012

PATIENT
  Age: 86 Year
  Sex: Male

DRUGS (8)
  1. PANTOPRAZOLE [Concomitant]
  2. TRIMETAZIDINE HYDROCHLORIDE [Concomitant]
  3. FLAGYL [Suspect]
     Indication: CHOLECYSTITIS
     Dosage: (500 MG, FREQUENCY UNKNOWN INTRAVENOUS (NOT OTHERWISE SPECIFIED)
     Route: 042
     Dates: start: 20110828, end: 20110904
  4. LASIX [Concomitant]
  5. CIPROFLOXACIN [Suspect]
     Indication: CHOLECYSTITIS
     Dosage: (500 MG, FREQUENCY UNKNOWN ORAL)
     Route: 048
     Dates: start: 20110904, end: 20110921
  6. SIMVASTATIN [Concomitant]
  7. ACETAMINOPHEN [Concomitant]
  8. CEFTRIAXONE [Suspect]
     Indication: CHOLECYSTITIS
     Dosage: (1 G QD INTRAVENOUS (NOT OTHERWISE SPECIFIED))
     Route: 042
     Dates: start: 20110823, end: 20110921

REACTIONS (1)
  - CHOLESTASIS [None]
